FAERS Safety Report 20974354 (Version 1)
Quarter: 2022Q2

REPORT INFORMATION
  Report Type: Spontaneous
  Country: US (occurrence: US)
  Receive Date: 20220617
  Receipt Date: 20220617
  Transmission Date: 20220720
  Serious: Yes (Hospitalization, Other)
  Sender: FDA-Public Use
  Company Number: US-MYLANLABS-2022M1044679

PATIENT
  Age: 74 Year
  Sex: Male
  Weight: 86.2 kg

DRUGS (17)
  1. DUONEB [Suspect]
     Active Substance: ALBUTEROL SULFATE\IPRATROPIUM BROMIDE
     Indication: Dyspnoea
     Dosage: 3 MILLILITER, Q6H
  2. ZOVIRAX [Concomitant]
     Active Substance: ACYCLOVIR
     Dosage: TAKE 400 MG IN THE MORNING AND 400 MG BEFORE BEDTIME BY MOUTH
     Route: 048
  3. ALBUTEROL SULFATE [Concomitant]
     Active Substance: ALBUTEROL SULFATE
     Indication: Dyspnoea
     Dosage: TAKE 2 PUFFS EVERY 6 HOURS AS NEEDED BY INHALATION
  4. NORVASC [Concomitant]
     Active Substance: AMLODIPINE BESYLATE
     Dosage: TAKE 5 MG IN THE MORNING BY MOUTH
     Route: 048
  5. MEPRON [Concomitant]
     Active Substance: ATOVAQUONE
     Dosage: TAKE 5 MLS BY MOUTH DAILY
  6. PLAVIX [Concomitant]
     Active Substance: CLOPIDOGREL BISULFATE
     Dosage: TAKE 75 MG IN THE MORNING BY MOUTH
     Route: 048
  7. VOLTAREN [Concomitant]
     Active Substance: DICLOFENAC SODIUM
     Dosage: APPLY 2 G IN MORNING AND 2 G AT NOON AND 2 G IN THE EVENING AND 2 G BEFORE BEDTIME TO AFFECTED AREA
  8. CYMBALTA [Concomitant]
     Active Substance: DULOXETINE HYDROCHLORIDE
     Dosage: TAKE 30 MG IN THE MORNING BY MOUTH
     Route: 048
  9. JARDIANCE [Concomitant]
     Active Substance: EMPAGLIFLOZIN
     Dosage: TAKE 10 MG IN MOMING BY MOUTH
     Route: 048
  10. CHONDROITIN SULFATE (BOVINE)\GLUCOSAMINE HYDROCHLORIDE [Concomitant]
     Active Substance: CHONDROITIN SULFATE (BOVINE)\GLUCOSAMINE HYDROCHLORIDE
     Dosage: TAKE 900 MG BY MOUTH
     Route: 048
  11. HUMALOG MIX50/50 [Concomitant]
     Active Substance: INSULIN LISPRO
     Dosage: INJECT 25 UNITS BEFORE BREAKFAST AND TO 40 UNITS BEFORE DINNER
  12. COZAAR [Concomitant]
     Active Substance: LOSARTAN POTASSIUM
     Dosage: TAKE 25 MG IN THE MORNING BY MOUTH
     Route: 048
  13. PROTONIX [Concomitant]
     Active Substance: PANTOPRAZOLE SODIUM
     Dosage: TAKE 1 TABLET TWICE A DAY. 30 MINUTES BEFORE BREAKFAST AND DINNER
  14. POMALYST [Concomitant]
     Active Substance: POMALIDOMIDE
     Dosage: TAKE 1 CAPSULE DAILY ON DAYS 1 THROUGH 21 OF A 28 DAY CYCLE
  15. KENALOG [Concomitant]
     Active Substance: TRIAMCINOLONE ACETONIDE
     Dosage: APPLY TO AFFECTED AREAS SPARINGLY AND RUB IN  WELL TWICE DAILY. NOT FOR FACE, BREAST OR GROIN
  16. CHERATUSSIN AC [Concomitant]
     Active Substance: CODEINE PHOSPHATE\GUAIFENESIN
     Indication: Cough
     Dosage: 10-100 MG/5 ML LIQUID, TAKE 10 ML EVERY 6 HOURS AS NEEDED BY MOUTH
     Route: 048
  17. COENZYME Q10 [Concomitant]
     Active Substance: DIETARY SUPPLEMENT\UBIDECARENONE
     Dosage: TAKE BY MOUTH DAILY
     Route: 048

REACTIONS (3)
  - Acute respiratory failure [Unknown]
  - COVID-19 pneumonia [Unknown]
  - COVID-19 [Unknown]

NARRATIVE: CASE EVENT DATE: 20220101
